FAERS Safety Report 7123665-2 (Version None)
Quarter: 2010Q4

REPORT INFORMATION
  Report Type: 
  Country: None (occurrence: None)
  Receive Date: 20101125
  Receipt Date: 20101119
  Transmission Date: 20110411
  Serious: Yes (Other)
  Sender: FDA-Public Use
  Company Number: US-AMGEN-USASP2010005726

PATIENT

DRUGS (1)
  1. PROLIA [Suspect]
     Indication: OSTEOPOROSIS POSTMENOPAUSAL
     Dosage: 60 MG, Q6MO
     Dates: start: 20101111

REACTIONS (12)
  - BACK PAIN [None]
  - BURSITIS [None]
  - DISABILITY [None]
  - FATIGUE [None]
  - FEAR [None]
  - FRUSTRATION [None]
  - HYPOAESTHESIA [None]
  - INFLUENZA LIKE ILLNESS [None]
  - JOINT STIFFNESS [None]
  - MUSCLE SPASMS [None]
  - SLEEP DISORDER [None]
  - URINE ABNORMALITY [None]
